FAERS Safety Report 7107352-2 (Version None)
Quarter: 2010Q4

REPORT INFORMATION
  Report Type: 
  Country: None (occurrence: None)
  Receive Date: 20101112
  Receipt Date: 20101112
  Transmission Date: 20110411
  Serious: No
  Sender: FDA-Public Use
  Company Number: None

PATIENT
  Sex: Female
  Weight: 66.6788 kg

DRUGS (1)
  1. INFED [Suspect]
     Indication: IRON DEFICIENCY
     Dosage: 25 MG IVP
     Route: 042
     Dates: start: 20101105

REACTIONS (4)
  - CHEST PAIN [None]
  - ERYTHEMA [None]
  - FEELING HOT [None]
  - NAUSEA [None]
